FAERS Safety Report 7426402-7 (Version None)
Quarter: 2011Q2

REPORT INFORMATION
  Report Type: 
  Country: None (occurrence: None)
  Receive Date: 20110420
  Receipt Date: 20110404
  Transmission Date: 20111010
  Serious: Yes (Hospitalization)
  Sender: FDA-Public Use
  Company Number: FR-PFIZER INC-2006150408

PATIENT
  Sex: Male

DRUGS (4)
  1. RETROVIR [Concomitant]
     Route: 064
  2. RETROVIR [Suspect]
     Indication: HIV INFECTION
     Dosage: UNK
     Route: 064
  3. COMBIVIR [Suspect]
     Indication: HIV INFECTION
     Dosage: UNK
     Route: 064
  4. VIRACEPT [Suspect]
     Indication: HIV INFECTION
     Route: 064

REACTIONS (3)
  - ANAEMIA [None]
  - DRUG EXPOSURE DURING PREGNANCY [None]
  - HYPERLACTACIDAEMIA [None]
